FAERS Safety Report 4950774-6 (Version None)
Quarter: 2006Q1

REPORT INFORMATION
  Report Type: 
  Country: None (occurrence: None)
  Receive Date: 20060322
  Receipt Date: 20021101
  Transmission Date: 20060701
  Serious: Yes (Other)
  Sender: FDA-Public Use
  Company Number: DE-BRISTOL-MYERS SQUIBB COMPANY-13313226

PATIENT
  Age: 6 Year
  Sex: Male
  Weight: 21 kg

DRUGS (7)
  1. SUSTIVA [Suspect]
     Indication: HIV INFECTION
     Dosage: 01-AUG-2002, DOSE INCREASED TO 400 MG/DAY, INTERRUPTED 09-NOV-2002,RESTART 24-JAN-2003 600 MG DAILY
     Dates: start: 19990909
  2. ZERIT [Suspect]
     Indication: HIV INFECTION
     Dosage: INTERRUPTED 09-NOV-2003, RESTARTED 24-JAN-2003
     Dates: start: 19980407
  3. ZIDOVUDINE [Suspect]
     Indication: HIV INFECTION
     Dates: start: 19971222, end: 19980407
  4. LAMIVUDINE [Suspect]
     Indication: HIV INFECTION
     Dosage: INTERRUPTED 09-NOV-2003, RESTARTED 24-JAN-2003
     Dates: start: 19971222
  5. NELFINAVIR [Suspect]
     Indication: HIV INFECTION
     Dosage: INCREASED TO 55 MG/KG TWICE DAILY
     Dates: start: 19971222, end: 19990909
  6. RITONAVIR [Suspect]
     Indication: HIV INFECTION
     Dates: start: 19980107, end: 19990813
  7. CO-TRIMOXAZOLE [Concomitant]
     Dates: start: 19971222, end: 19981014

REACTIONS (4)
  - EAR INFECTION [None]
  - HYPERCHOLESTEROLAEMIA [None]
  - LYMPHADENOPATHY [None]
  - TONSILLITIS [None]
